FAERS Safety Report 8818355 (Version 2)
Quarter: 2012Q4

REPORT INFORMATION
  Report Type: 
  Country: US (occurrence: US)
  Receive Date: 20121002
  Receipt Date: 20121017
  Transmission Date: 20130627
  Serious: No
  Sender: FDA-Public Use
  Company Number: US-ROXANE LABORATORIES, INC.-2012-RO-01915RO

PATIENT
  Age: 73 Year
  Sex: Female

DRUGS (2)
  1. FUROSEMIDE [Suspect]
     Indication: HYPERTENSION
     Dosage: 10 mg
     Route: 048
     Dates: start: 20120827
  2. FUROSEMIDE [Suspect]
     Indication: FLUID RETENTION

REACTIONS (9)
  - Pruritus [Unknown]
  - Deafness [Recovered/Resolved]
  - Palpitations [Unknown]
  - Tinnitus [Unknown]
  - Arthralgia [Unknown]
  - Auricular swelling [Unknown]
  - Urine output decreased [Unknown]
  - Drug ineffective [Unknown]
  - Product quality issue [Unknown]
